FAERS Safety Report 9909091 (Version 1)
Quarter: 2014Q1

REPORT INFORMATION
  Report Type: Spontaneous
  Country: US (occurrence: None)
  Receive Date: 20140212
  Receipt Date: 20140212
  Transmission Date: 20141002
  Serious: Yes (Other)
  Sender: FDA-Public Use
  Company Number: 7265292

PATIENT
  Age: 55 Year
  Sex: 0

DRUGS (3)
  1. LEVOTHYROXINE [Suspect]
     Indication: HYPOTHYROIDISM
  2. HYDROCORTISONE [Suspect]
     Indication: ADRENAL INSUFFICIENCY
     Dates: start: 201209
  3. HYDROCORTISONE [Suspect]
     Indication: HYPOPHYSITIS
     Dates: start: 201209

REACTIONS (5)
  - Metastatic malignant melanoma [None]
  - Malignant neoplasm progression [None]
  - Metastases to spleen [None]
  - Metastases to lymph nodes [None]
  - Metastases to lung [None]
